FAERS Safety Report 9419299 (Version 1)
Quarter: 2013Q3

REPORT INFORMATION
  Report Type: Spontaneous
  Country: AU (occurrence: AU)
  Receive Date: 20130725
  Receipt Date: 20130725
  Transmission Date: 20140515
  Serious: Yes (Death)
  Sender: FDA-Public Use
  Company Number: AU-BAYER-2013-089557

PATIENT
  Sex: 0

DRUGS (1)
  1. NEXAVAR 200 MG [Suspect]
     Indication: RENAL CELL CARCINOMA
     Dosage: 200 MG, UNK
     Route: 048

REACTIONS (1)
  - Renal cell carcinoma [Fatal]
